FAERS Safety Report 11415125 (Version 3)
Quarter: 2017Q4

REPORT INFORMATION
  Report Type: Spontaneous
  Country: US (occurrence: US)
  Receive Date: 20150825
  Receipt Date: 20171221
  Transmission Date: 20180320
  Serious: No
  Sender: FDA-Public Use
  Company Number: US-ASTRAZENECA-2010BM02983

PATIENT
  Age: 721 Month
  Sex: Male
  Weight: 96.2 kg

DRUGS (14)
  1. BENICAR [Concomitant]
     Active Substance: OLMESARTAN MEDOXOMIL
     Indication: BLOOD PRESSURE ABNORMAL
  2. NORVASC [Concomitant]
     Active Substance: AMLODIPINE BESYLATE
     Indication: HYPERTENSION
  3. BYDUREON [Suspect]
     Active Substance: EXENATIDE
     Indication: TYPE 2 DIABETES MELLITUS
     Dosage: BYDUREON DUAL CHAMBER PEN, 2 MG, ONCE A WEEK
     Route: 058
     Dates: start: 20150813
  4. ATENOLOL. [Concomitant]
     Active Substance: ATENOLOL
     Indication: HYPERTENSION
  5. INVOKANA [Concomitant]
     Active Substance: CANAGLIFLOZIN
     Indication: DIABETES MELLITUS
  6. BYETTA [Suspect]
     Active Substance: EXENATIDE
     Indication: TYPE 2 DIABETES MELLITUS
     Route: 058
     Dates: start: 20100305
  7. GLUCOPHAGE [Concomitant]
     Active Substance: METFORMIN HYDROCHLORIDE
     Indication: DIABETES MELLITUS
  8. ATENOLOL. [Concomitant]
     Active Substance: ATENOLOL
     Indication: BLOOD PRESSURE ABNORMAL
  9. GLIMEPIRIDE. [Concomitant]
     Active Substance: GLIMEPIRIDE
     Indication: TYPE 2 DIABETES MELLITUS
  10. AVANDAMET [Concomitant]
     Active Substance: METFORMIN HYDROCHLORIDE\ROSIGLITAZONE MALEATE
     Indication: TYPE 2 DIABETES MELLITUS
  11. BYDUREON [Suspect]
     Active Substance: EXENATIDE
     Indication: TYPE 2 DIABETES MELLITUS
     Dosage: BYDUREON KIT, 2 MG, ONCE A WEEK
     Route: 058
  12. AVALIDE [Concomitant]
     Active Substance: HYDROCHLOROTHIAZIDE\IRBESARTAN
     Indication: HYPERTENSION
  13. BYETTA [Suspect]
     Active Substance: EXENATIDE
     Indication: TYPE 2 DIABETES MELLITUS
     Route: 058
     Dates: start: 20100204, end: 20100304
  14. NORVASC [Concomitant]
     Active Substance: AMLODIPINE BESYLATE
     Indication: BLOOD PRESSURE ABNORMAL

REACTIONS (9)
  - Blood pressure diastolic increased [Not Recovered/Not Resolved]
  - Erythema [Unknown]
  - Blood pressure increased [Not Recovered/Not Resolved]
  - Weight decreased [Unknown]
  - Injection site haemorrhage [Recovered/Resolved]
  - Vomiting [Unknown]
  - Nausea [Recovered/Resolved]
  - Blood glucose increased [Recovered/Resolved]
  - Early satiety [Not Recovered/Not Resolved]

NARRATIVE: CASE EVENT DATE: 201002
